FAERS Safety Report 13822454 (Version 2)
Quarter: 2017Q4

REPORT INFORMATION
  Report Type: Report from Study
  Country: CO (occurrence: CO)
  Receive Date: 20170801
  Receipt Date: 20171020
  Transmission Date: 20180320
  Serious: Yes (Death, Other)
  Sender: FDA-Public Use
  Company Number: CO-ARIAD PHARMACEUTICALS, INC-2017CO008595

PATIENT

DRUGS (2)
  1. ICLUSIG [Suspect]
     Active Substance: PONATINIB
     Indication: CHRONIC MYELOID LEUKAEMIA
     Dosage: 45 MG, QD
     Route: 048
     Dates: start: 20161228, end: 20170710
  2. ALLOPURINOL. [Concomitant]
     Active Substance: ALLOPURINOL
     Indication: HYPERURICAEMIA
     Dosage: 25 MG, Q12H
     Route: 048
     Dates: end: 20170715

REACTIONS (8)
  - Cardio-respiratory arrest [Fatal]
  - Neurological decompensation [Unknown]
  - Malaise [Unknown]
  - Headache [Unknown]
  - Hypophosphataemia [Not Recovered/Not Resolved]
  - Drug dose omission [Unknown]
  - Drug resistance [Unknown]
  - Hyperthermia [Unknown]

NARRATIVE: CASE EVENT DATE: 201707
